FAERS Safety Report 8484636-7 (Version None)
Quarter: 2012Q3

REPORT INFORMATION
  Report Type: 
  Country: None (occurrence: None)
  Receive Date: 20120703
  Receipt Date: 20120330
  Transmission Date: 20120928
  Serious: No
  Sender: FDA-Public Use
  Company Number: US-TEVA-331242USA

PATIENT
  Sex: Female

DRUGS (2)
  1. NUVIGIL [Suspect]
     Route: 067
  2. NUVIGIL [Suspect]
     Route: 048
     Dates: start: 20120101

REACTIONS (2)
  - EYELID OEDEMA [None]
  - DYSPNOEA [None]
